FAERS Safety Report 14293002 (Version 4)
Quarter: 2018Q2

REPORT INFORMATION
  Report Type: Spontaneous
  Country: GB (occurrence: GB)
  Receive Date: 20171215
  Receipt Date: 20180430
  Transmission Date: 20180711
  Serious: Yes (Other)
  Sender: FDA-Public Use
  Company Number: PHHY2017GB186430

PATIENT
  Sex: Female

DRUGS (5)
  1. IRBESARTAN. [Suspect]
     Active Substance: IRBESARTAN
     Dosage: UNK, QD UNK, TOOK 3 MS TABLETS (STRENGTH: 75 MG)
     Route: 048
  2. MOTENS [Concomitant]
     Active Substance: LACIDIPINE
     Indication: PRODUCT USE IN UNAPPROVED INDICATION
     Route: 065
  3. MOTENS [Concomitant]
     Active Substance: LACIDIPINE
     Indication: PRODUCT USED FOR UNKNOWN INDICATION
     Route: 065
  4. IRBESARTAN. [Suspect]
     Active Substance: IRBESARTAN
     Indication: HYPERTENSION
     Dosage: UNK, IN THE MORNING (STRENGTH: 75 MG)
     Route: 048
  5. IRBESARTAN. [Suspect]
     Active Substance: IRBESARTAN
     Dosage: 300 MG, QD (TOOK 2 TABLETS OF 150MG) ((STRENGTH: 150 MG))
     Route: 065

REACTIONS (4)
  - Heart rate irregular [Unknown]
  - Wrong drug administered [Unknown]
  - Product physical issue [Unknown]
  - Arrhythmia [Unknown]

NARRATIVE: CASE EVENT DATE: 20171113
